FAERS Safety Report 6667592-3 (Version None)
Quarter: 2010Q2

REPORT INFORMATION
  Report Type: 
  Country: None (occurrence: None)
  Receive Date: 20100405
  Receipt Date: 20100326
  Transmission Date: 20101027
  Serious: Yes (Hospitalization)
  Sender: FDA-Public Use
  Company Number: US-ELI_LILLY_AND_COMPANY-US201002001538

PATIENT
  Sex: Male

DRUGS (6)
  1. ZYPREXA [Suspect]
     Indication: SCHIZOAFFECTIVE DISORDER
     Dosage: 2.5 MG, DAILY (1/D)
  2. ZYPREXA [Suspect]
     Dosage: 10 MG, DAILY (1/D)
  3. ZYPREXA [Suspect]
     Dosage: 2.5 MG, DAILY (1/D)
  4. ZYPREXA [Suspect]
     Dosage: 10 MG, DAILY (1/D)
  5. ABILIFY [Concomitant]
     Dates: start: 20040101, end: 20040101
  6. OTHER HYPNOTICS AND SEDATIVES [Concomitant]

REACTIONS (23)
  - ABDOMINAL DISCOMFORT [None]
  - ACTIVITIES OF DAILY LIVING IMPAIRED [None]
  - AGITATION [None]
  - ASTHENIA [None]
  - ASTHENOPIA [None]
  - BLOOD CHOLESTEROL INCREASED [None]
  - BLOOD GLUCOSE INCREASED [None]
  - DRUG INEFFECTIVE [None]
  - DRUG WITHDRAWAL SYNDROME [None]
  - DRY MOUTH [None]
  - DYSPEPSIA [None]
  - EATING DISORDER [None]
  - INSOMNIA [None]
  - LIPIDS INCREASED [None]
  - MALAISE [None]
  - NASAL DRYNESS [None]
  - ORAL PAIN [None]
  - PARAESTHESIA [None]
  - PNEUMONIA [None]
  - PSYCHOTIC DISORDER [None]
  - SALIVARY HYPERSECRETION [None]
  - SEXUALLY TRANSMITTED DISEASE [None]
  - VISUAL IMPAIRMENT [None]
